FAERS Safety Report 23659511 (Version 4)
Quarter: 2024Q2

REPORT INFORMATION
  Report Type: Spontaneous
  Country: US (occurrence: US)
  Receive Date: 20240321
  Receipt Date: 20240531
  Transmission Date: 20240716
  Serious: Yes (Death, Life-Threatening, Hospitalization)
  Sender: FDA-Public Use
  Company Number: US-ALKERMES INC.-ALK-2024-000642

PATIENT
  Sex: Female
  Weight: 68.934 kg

DRUGS (11)
  1. VIVITROL [Suspect]
     Active Substance: NALTREXONE
     Indication: Alcohol use disorder
     Dosage: 380 MILLIGRAM, QMO
     Route: 030
     Dates: start: 20240130, end: 20240318
  2. VIVITROL [Suspect]
     Active Substance: NALTREXONE
     Indication: Substance use disorder
  3. METHAMPHETAMINE [Suspect]
     Active Substance: METHAMPHETAMINE
     Indication: Product used for unknown indication
     Dosage: UNK
     Route: 065
  4. WELLBUTRIN XL [Concomitant]
     Active Substance: BUPROPION HYDROCHLORIDE
     Indication: Substance use disorder
     Dosage: 300 MILLIGRAM, QAM
     Route: 048
     Dates: start: 20231229, end: 20240318
  5. CATAPRES-TTS [Concomitant]
     Active Substance: CLONIDINE
     Indication: Hypertension
     Dosage: 0.2 MILLIGRAM, QWK
     Route: 062
     Dates: start: 20231229, end: 20240229
  6. AMLODIPINE [Concomitant]
     Active Substance: AMLODIPINE BESYLATE
     Indication: Essential hypertension
     Dosage: 10 MILLIGRAM, QD
     Route: 048
     Dates: start: 20230821, end: 20240318
  7. RISPERDAL [Concomitant]
     Active Substance: RISPERIDONE
     Indication: Hallucination, auditory
     Dosage: 1 MILLIGRAM, QHS
     Route: 065
     Dates: start: 20230814, end: 20240318
  8. RISPERDAL [Concomitant]
     Active Substance: RISPERIDONE
     Dosage: 1 MILLIGRAM, QAM
     Route: 065
     Dates: start: 20240130, end: 20240229
  9. LISINOPRIL [Concomitant]
     Active Substance: LISINOPRIL
     Indication: Essential hypertension
     Dosage: 0.5 OF 20 MILLIGRAM, QD
     Route: 048
     Dates: start: 20240130, end: 20240318
  10. ZOLOFT [Concomitant]
     Active Substance: SERTRALINE HYDROCHLORIDE
     Indication: Product used for unknown indication
     Dosage: 25 MILLIGRAM, QD
     Route: 048
     Dates: start: 20231229, end: 20240318
  11. ADALAT CC [Concomitant]
     Active Substance: NIFEDIPINE
     Indication: Hypertension
     Dosage: 60 MILLIGRAM, QD
     Route: 048

REACTIONS (11)
  - Cerebrovascular accident [Fatal]
  - Coma [Fatal]
  - Tachypnoea [Unknown]
  - Hypoxia [Unknown]
  - Hyperhidrosis [Unknown]
  - Blood pressure increased [Unknown]
  - Off label use [Not Recovered/Not Resolved]
  - Drug abuse [Unknown]
  - Viral upper respiratory tract infection [Unknown]
  - Headache [Unknown]
  - Injection site pain [Unknown]

NARRATIVE: CASE EVENT DATE: 20240101
